FAERS Safety Report 5444324-8 (Version None)
Quarter: 2007Q3

REPORT INFORMATION
  Report Type: 
  Country: None (occurrence: None)
  Receive Date: 20070906
  Receipt Date: 20070905
  Transmission Date: 20080115
  Serious: Yes (Other)
  Sender: FDA-Public Use
  Company Number: CA-BRISTOL-MYERS SQUIBB COMPANY-13896832

PATIENT
  Age: 42 Year
  Sex: Male

DRUGS (8)
  1. WARFARIN SODIUM [Suspect]
  2. LOPINAVIR AND RITONAVIR [Suspect]
     Indication: HIV INFECTION
  3. ZIDOVUDINE [Suspect]
  4. LAMIVUDINE [Suspect]
  5. STEROIDS [Suspect]
  6. FLUCONAZOLE [Suspect]
  7. CITALOPRAM HYDROBROMIDE [Suspect]
  8. CO-TRIMOXAZOLE [Suspect]

REACTIONS (2)
  - DRUG INTERACTION [None]
  - INTERNATIONAL NORMALISED RATIO DECREASED [None]
